FAERS Safety Report 20812587 (Version 1)
Quarter: 2022Q2

REPORT INFORMATION
  Report Type: Spontaneous
  Country: None (occurrence: US)
  Receive Date: 20220511
  Receipt Date: 20220511
  Transmission Date: 20220721
  Serious: Yes (Other)
  Sender: FDA-Public Use
  Company Number: US-Jiangsu Hengrui Medicine Co., Ltd.-2128663

PATIENT
  Age: 19 Year
  Sex: Female

DRUGS (11)
  1. CYCLOPHOSPHAMIDE [Suspect]
     Active Substance: CYCLOPHOSPHAMIDE
     Indication: Dermatomyositis
  2. METHOTREXATE [Suspect]
     Active Substance: METHOTREXATE
  3. MYCOPHENOLATE MOFETIL [Suspect]
     Active Substance: MYCOPHENOLATE MOFETIL
  4. PREDNISONE [Concomitant]
     Active Substance: PREDNISONE
  5. ABATACEPT [Concomitant]
     Active Substance: ABATACEPT
  6. RITUXIMAB [Concomitant]
     Active Substance: RITUXIMAB
  7. TOFACITINIB [Concomitant]
     Active Substance: TOFACITINIB
  8. SILDENAFIL [Concomitant]
     Active Substance: SILDENAFIL
  9. METHYLPREDNISOLONE [Concomitant]
     Active Substance: METHYLPREDNISOLONE
  10. HYDROXYCHLOROQUINE [Concomitant]
     Active Substance: HYDROXYCHLOROQUINE
  11. NIFEDIPINE [Concomitant]
     Active Substance: NIFEDIPINE

REACTIONS (2)
  - Nodular regenerative hyperplasia [Recovering/Resolving]
  - Product use in unapproved indication [Unknown]
